FAERS Safety Report 9520161 (Version 1)
Quarter: 2013Q3

REPORT INFORMATION
  Report Type: Spontaneous
  Country: AU (occurrence: AU)
  Receive Date: 20130912
  Receipt Date: 20130912
  Transmission Date: 20140515
  Serious: Yes (Hospitalization, Other)
  Sender: FDA-Public Use
  Company Number: AU-ELI_LILLY_AND_COMPANY-AU201309000670

PATIENT
  Age: 40 Year
  Sex: Male

DRUGS (13)
  1. GEMCITABINE HYDROCHLORIDE [Suspect]
     Indication: LUNG CANCER METASTATIC
     Dosage: UNK
     Dates: start: 20130305
  2. GEMCITABINE HYDROCHLORIDE [Suspect]
     Dosage: UNK
     Dates: start: 20130412
  3. GEMCITABINE HYDROCHLORIDE [Suspect]
     Dosage: UNK
     Dates: start: 20130508
  4. GEMCITABINE HYDROCHLORIDE [Suspect]
     Dosage: UNK
     Dates: start: 20130612
  5. GEMCITABINE HYDROCHLORIDE [Suspect]
     Dosage: UNK
     Dates: start: 20130711
  6. CARBOPLATIN [Suspect]
     Indication: LUNG CANCER METASTATIC
     Dosage: UNK
     Dates: start: 20130305
  7. CARBOPLATIN [Suspect]
     Dosage: UNK
     Dates: start: 20130412
  8. CARBOPLATIN [Suspect]
     Dosage: UNK
     Dates: start: 20130508
  9. CARBOPLATIN [Suspect]
     Dosage: UNK
     Dates: start: 20130612
  10. CARBOPLATIN [Suspect]
     Dosage: UNK
     Dates: start: 20130711
  11. FLIXOTIDE [Concomitant]
  12. SALBUTAMOL [Concomitant]
  13. ENOXAPARIN [Concomitant]

REACTIONS (10)
  - Musculoskeletal pain [Recovering/Resolving]
  - Headache [Recovered/Resolved]
  - Fatigue [Recovered/Resolved]
  - Chest pain [Recovered/Resolved]
  - Haemoptysis [Recovered/Resolved]
  - Hallucination [Recovered/Resolved]
  - Deep vein thrombosis [Recovered/Resolved]
  - Cellulitis [Recovered/Resolved]
  - Febrile neutropenia [Recovered/Resolved]
  - Malignant neoplasm progression [Unknown]
